FAERS Safety Report 25019997 (Version 1)
Quarter: 2025Q1

REPORT INFORMATION
  Report Type: Spontaneous
  Country: US (occurrence: None)
  Receive Date: 20250227
  Receipt Date: 20250227
  Transmission Date: 20250408
  Serious: No
  Sender: FDA-CTU
  Company Number: None

PATIENT

DRUGS (1)
  1. LORAZEPAM [Suspect]
     Active Substance: LORAZEPAM
     Indication: Cyclic vomiting syndrome
     Dates: start: 20190902, end: 20190911

REACTIONS (3)
  - Amyotrophic lateral sclerosis [None]
  - Disease progression [None]
  - Therapy change [None]
